FAERS Safety Report 22045275 (Version 15)
Quarter: 2025Q2

REPORT INFORMATION
  Report Type: Spontaneous
  Country: US (occurrence: US)
  Receive Date: 20230228
  Receipt Date: 20250430
  Transmission Date: 20250716
  Serious: Yes (Hospitalization, Other)
  Sender: PFIZER
  Company Number: US-PFIZER INC-PV202300036428

PATIENT
  Age: 4 Year
  Sex: Male
  Weight: 16.3 kg

DRUGS (9)
  1. ELELYSO [Suspect]
     Active Substance: TALIGLUCERASE ALFA
     Indication: Gaucher^s disease
     Route: 042
     Dates: start: 20230217
  2. ELELYSO [Suspect]
     Active Substance: TALIGLUCERASE ALFA
     Route: 042
  3. ELELYSO [Suspect]
     Active Substance: TALIGLUCERASE ALFA
     Dates: start: 20240906
  4. ELELYSO [Suspect]
     Active Substance: TALIGLUCERASE ALFA
  5. ELELYSO [Suspect]
     Active Substance: TALIGLUCERASE ALFA
     Dates: start: 20241011
  6. ELELYSO [Suspect]
     Active Substance: TALIGLUCERASE ALFA
  7. PREDNISOLONE [Concomitant]
     Active Substance: PREDNISOLONE
  8. PREDNISOLONE [Concomitant]
     Active Substance: PREDNISOLONE
     Dates: start: 202305
  9. SODIUM CHLORIDE [Concomitant]
     Active Substance: SODIUM CHLORIDE

REACTIONS (17)
  - Angioedema [Recovering/Resolving]
  - Pain [Recovering/Resolving]
  - Pain in extremity [Recovered/Resolved]
  - Back pain [Recovered/Resolved]
  - Neoplasm malignant [Unknown]
  - Anaphylactic reaction [Unknown]
  - Generalised oedema [Unknown]
  - Face oedema [Unknown]
  - Incorrect product administration duration [Unknown]
  - C-reactive protein increased [Unknown]
  - Back pain [Unknown]
  - Swelling [Unknown]
  - Skin mass [Unknown]
  - Peripheral swelling [Unknown]
  - Influenza [Unknown]
  - Weight increased [Unknown]
  - Stress [Unknown]

NARRATIVE: CASE EVENT DATE: 20240109
